FAERS Safety Report 5373775-5 (Version None)
Quarter: 2007Q2

REPORT INFORMATION
  Report Type: 
  Country: None (occurrence: None)
  Receive Date: 20070615
  Receipt Date: 20070306
  Transmission Date: 20071010
  Serious: Yes (Hospitalization, Other)
  Sender: FDA-Public Use
  Company Number: 200710351US

PATIENT
  Age: 55 Year
  Weight: 90 kg

DRUGS (6)
  1. LANTUS [Suspect]
     Indication: INSULIN-REQUIRING TYPE II DIABETES MELLITUS
     Dosage: 20 U QD
     Dates: start: 20061220, end: 20070102
  2. NOVOLOG [Suspect]
     Dosage: 5 U TID
  3. TRAMADOL HCL [Concomitant]
  4. ASPIRIN [Concomitant]
  5. ATORVASTATIN CALCIUM (LIPITOR) [Concomitant]
  6. COREG [Concomitant]

REACTIONS (4)
  - ANAPHYLACTIC REACTION [None]
  - DYSPHAGIA [None]
  - RASH [None]
  - URTICARIA [None]
